FAERS Safety Report 5452582-9 (Version None)
Quarter: 2007Q3

REPORT INFORMATION
  Report Type: 
  Country: None (occurrence: None)
  Receive Date: 20070914
  Receipt Date: 20070628
  Transmission Date: 20080115
  Serious: Yes (Life-Threatening, Hospitalization)
  Sender: FDA-Public Use
  Company Number: JP-NOVOPROD-265057

PATIENT
  Sex: Female
  Weight: 60 kg

DRUGS (1)
  1. NOVORAPID 30 MIX CHU [Suspect]
     Indication: DIABETES MELLITUS
     Dosage: 12 IU, QD
     Route: 058
     Dates: start: 20070626

REACTIONS (1)
  - SUICIDE ATTEMPT [None]
